FAERS Safety Report 7622453-8 (Version None)
Quarter: 2011Q3

REPORT INFORMATION
  Report Type: 
  Country: None (occurrence: None)
  Receive Date: 20110718
  Receipt Date: 20110718
  Transmission Date: 20111222
  Serious: Yes (Life-Threatening, Disabling, Other)
  Sender: FDA-Public Use
  Company Number: None

PATIENT
  Sex: Female
  Weight: 54.4316 kg

DRUGS (4)
  1. THYROID TAB [Suspect]
  2. SYNTHROID [Suspect]
     Indication: HYPOTHYROIDISM
     Dates: start: 20070801, end: 20110701
  3. LEVOXYL [Suspect]
  4. THYROID TAB [Suspect]

REACTIONS (28)
  - NECK PAIN [None]
  - LUNG DISORDER [None]
  - UTERINE LEIOMYOMA [None]
  - ADVERSE DRUG REACTION [None]
  - FLATULENCE [None]
  - TREMOR [None]
  - ALOPECIA [None]
  - WEIGHT DECREASED [None]
  - DYSPHONIA [None]
  - ABDOMINAL DISCOMFORT [None]
  - PRURITUS [None]
  - SPEECH DISORDER [None]
  - ANOSMIA [None]
  - DECREASED APPETITE [None]
  - CONSTIPATION [None]
  - PALPITATIONS [None]
  - ABDOMINAL DISTENSION [None]
  - HEADACHE [None]
  - DYSPNOEA [None]
  - HYPERSENSITIVITY [None]
  - HYPERHIDROSIS [None]
  - PERIPHERAL COLDNESS [None]
  - RASH [None]
  - MENSTRUATION IRREGULAR [None]
  - PRODUCT FORMULATION ISSUE [None]
  - PAIN IN JAW [None]
  - PELVIC PAIN [None]
  - GAIT DISTURBANCE [None]
